FAERS Safety Report 7767271-5 (Version None)
Quarter: 2011Q3

REPORT INFORMATION
  Report Type: 
  Country: None (occurrence: None)
  Receive Date: 20110922
  Receipt Date: 20100803
  Transmission Date: 20111222
  Serious: No
  Sender: FDA-Public Use
  Company Number: US-ASTRAZENECA-2010SE36239

PATIENT
  Age: 8784 Day
  Sex: Male
  Weight: 90.7 kg

DRUGS (1)
  1. SEROQUEL XR [Suspect]
     Indication: DEPRESSION
     Route: 048
     Dates: start: 20100727

REACTIONS (2)
  - SWELLING FACE [None]
  - BRONCHITIS [None]
